FAERS Safety Report 16024170 (Version 1)
Quarter: 2019Q1

REPORT INFORMATION
  Report Type: Spontaneous
  Country: FR (occurrence: FR)
  Receive Date: 20190301
  Receipt Date: 20190301
  Transmission Date: 20190418
  Serious: Yes (Other)
  Sender: FDA-Public Use
  Company Number: FR-009507513-2010SP007030

PATIENT
  Age: 59 Year
  Sex: Female

DRUGS (4)
  1. SPORANOX [Concomitant]
     Active Substance: ITRACONAZOLE
     Dosage: UNK
     Dates: start: 200808, end: 200909
  2. VFEND [Suspect]
     Active Substance: VORICONAZOLE
     Indication: ASPERGILLUS INFECTION
     Route: 048
     Dates: start: 20080101, end: 20080605
  3. CANCIDAS [Concomitant]
     Active Substance: CASPOFUNGIN ACETATE
     Indication: ASPERGILLUS INFECTION
     Dosage: UNK
     Dates: start: 200808, end: 200909
  4. POSACONAZOLE [Suspect]
     Active Substance: POSACONAZOLE
     Dosage: 40 MG/ML
     Route: 048
     Dates: start: 20090911, end: 20091223

REACTIONS (1)
  - Squamous cell carcinoma [Not Recovered/Not Resolved]

NARRATIVE: CASE EVENT DATE: 20091201
